FAERS Safety Report 8921949 (Version 1)
Quarter: 2012Q4

REPORT INFORMATION
  Report Type: Spontaneous
  Country: US (occurrence: None)
  Receive Date: 20121119
  Receipt Date: 20121119
  Transmission Date: 20130627
  Serious: No
  Sender: FDA-Public Use
  Company Number: None

PATIENT
  Age: 17 Year
  Sex: Male
  Weight: 65.77 kg

DRUGS (1)
  1. ISOTRETINOIN [Suspect]
     Indication: ACNE VULGARIS
     Dosage: 40 mg daily po
     Route: 048
     Dates: start: 20120517, end: 20120824

REACTIONS (1)
  - Rhabdomyolysis [None]
